FAERS Safety Report 7416927-2 (Version None)
Quarter: 2011Q2

REPORT INFORMATION
  Report Type: 
  Country: None (occurrence: None)
  Receive Date: 20110407
  Receipt Date: 20110324
  Transmission Date: 20111010
  Serious: Yes (Hospitalization, Disabling)
  Sender: FDA-Public Use
  Company Number: LTI2011A00068

PATIENT
  Age: 13 Year
  Sex: Male

DRUGS (4)
  1. OGAST (LANSOPRAZOLE) [Suspect]
     Dosage: 1 CAP, ORAL
     Route: 048
     Dates: start: 20110125
  2. PREDNISOLONE WINTHROP (PREDNISOLONE) [Concomitant]
  3. CEFPODOXIME WINTHROP (CEFPODOXIME) [Concomitant]
  4. VAXIGRIP (INFLUENZA VIRUS VACCINE POLYVALENT) [Suspect]
     Dosage: ONCE;
     Dates: start: 20101227, end: 20101227

REACTIONS (4)
  - HYPOTONIA [None]
  - DIZZINESS [None]
  - GUILLAIN-BARRE SYNDROME [None]
  - MONOPLEGIA [None]
